FAERS Safety Report 10365787 (Version 1)
Quarter: 2014Q3

REPORT INFORMATION
  Report Type: Spontaneous
  Country: CN (occurrence: None)
  Receive Date: 20140804
  Receipt Date: 20140804
  Transmission Date: 20150326
  Serious: Yes (Death)
  Sender: FDA-Public Use
  Company Number: 2014CN00966

PATIENT

DRUGS (3)
  1. OXALIPLATIN (OXALIPLATIN) [Suspect]
     Active Substance: OXALIPLATIN
     Indication: GASTRIC CANCER
     Dosage: 130 MG/M2 AS 2-HR INFUSION EVERY 3 WEEKS, INTRAVENOUS?
     Route: 042
  2. EPIRUBICIN (EPIRUBICIN HYDROCHLORIDE) INJECTION [Suspect]
     Active Substance: EPIRUBICIN
     Indication: GASTRIC CANCER
     Dosage: 50 MG/M2 ADMINISTERED ON DAY 1, EVERY 3 WEEKS, INTRAVENOUS
     Route: 042
  3. 5-FLUOROURACIL (5-FLUOROURACIL) [Suspect]
     Active Substance: FLUOROURACIL
     Indication: GASTRIC CANCER
     Dosage: 375-425 MG/M2 24-H CONTINUOUS INFUSION OVER 5 DAYS EVERY 3 WEEKS, INFUSION

REACTIONS (1)
  - Metastases to ovary [None]
